FAERS Safety Report 6229023-7 (Version None)
Quarter: 2009Q2

REPORT INFORMATION
  Report Type: 
  Country: None (occurrence: None)
  Receive Date: 20090615
  Receipt Date: 20090605
  Transmission Date: 20091009
  Serious: Yes (Hospitalization)
  Sender: FDA-Public Use
  Company Number: US-BIOGENIDEC-2008BI021084

PATIENT
  Age: 66 Year
  Sex: Female

DRUGS (1)
  1. AVONEX [Suspect]
     Indication: MULTIPLE SCLEROSIS
     Route: 030
     Dates: start: 20060201

REACTIONS (5)
  - BALANCE DISORDER [None]
  - BONE GRAFT [None]
  - DEPRESSED LEVEL OF CONSCIOUSNESS [None]
  - DERMATITIS ALLERGIC [None]
  - NERVOUS SYSTEM DISORDER [None]
